FAERS Safety Report 6660161-0 (Version None)
Quarter: 2010Q1

REPORT INFORMATION
  Report Type: 
  Country: None (occurrence: None)
  Receive Date: 20100331
  Receipt Date: 20100315
  Transmission Date: 20100710
  Serious: No
  Sender: FDA-Public Use
  Company Number: 2009BI019123

PATIENT
  Age: 47 Year
  Sex: Female

DRUGS (2)
  1. TYSABRI [Suspect]
     Indication: MULTIPLE SCLEROSIS
     Route: 042
     Dates: start: 20070613, end: 20090109
  2. TYSABRI [Suspect]
     Route: 042
     Dates: start: 20090605

REACTIONS (7)
  - BARRETT'S OESOPHAGUS [None]
  - BRONCHITIS [None]
  - EAR INFECTION [None]
  - FATIGUE [None]
  - LOWER RESPIRATORY TRACT INFECTION [None]
  - NASOPHARYNGITIS [None]
  - PNEUMONIA [None]
